FAERS Safety Report 10228208 (Version 1)
Quarter: 2014Q2

REPORT INFORMATION
  Report Type: Spontaneous
  Country: US (occurrence: None)
  Receive Date: 20140609
  Receipt Date: 20140609
  Transmission Date: 20141212
  Serious: Yes (Other)
  Sender: FDA-Public Use
  Company Number: None

PATIENT
  Age: 44 Year
  Sex: Female
  Weight: 63.05 kg

DRUGS (1)
  1. IMIPRAMINE HCL [Suspect]
     Indication: IRRITABLE BOWEL SYNDROME
     Dosage: 1 PILL AT BEDTIME TAKEN BY MOUTH
     Route: 048
     Dates: start: 20130412, end: 20140607

REACTIONS (5)
  - Erythema [None]
  - Fatigue [None]
  - Temperature intolerance [None]
  - Burning feet syndrome [None]
  - Paraesthesia [None]
